FAERS Safety Report 19414428 (Version 1)
Quarter: 2021Q2

REPORT INFORMATION
  Report Type: Spontaneous
  Country: FR (occurrence: FR)
  Receive Date: 20210614
  Receipt Date: 20210614
  Transmission Date: 20210717
  Serious: Yes (Death, Life-Threatening, Other)
  Sender: FDA-Public Use
  Company Number: FR-BRISTOL-MYERS SQUIBB COMPANY-BMS-2021-053723

PATIENT
  Age: 79 Year
  Sex: Male

DRUGS (1)
  1. HYDREA [Suspect]
     Active Substance: HYDROXYUREA
     Indication: ESSENTIAL THROMBOCYTHAEMIA
     Dosage: 500 MILLIGRAM, QD
     Route: 048
     Dates: start: 202102, end: 202105

REACTIONS (2)
  - Pyrexia [Recovering/Resolving]
  - Distributive shock [Recovering/Resolving]

NARRATIVE: CASE EVENT DATE: 202105
